FAERS Safety Report 26200947 (Version 1)
Quarter: 2025Q4

REPORT INFORMATION
  Report Type: Report from Study
  Country: CA (occurrence: CA)
  Receive Date: 20251226
  Receipt Date: 20251226
  Transmission Date: 20260118
  Serious: Yes (Hospitalization)
  Sender: ABBVIE
  Company Number: CA-ABBVIE-6299634

PATIENT
  Age: 86 Year
  Sex: Male
  Weight: 67.3 kg

DRUGS (2)
  1. LUPRON [Suspect]
     Active Substance: LEUPROLIDE ACETATE
     Indication: Prostate cancer
     Dosage: FORM STRENGTH: 30 MG
     Route: 030
     Dates: start: 20250129
  2. LUPRON [Suspect]
     Active Substance: LEUPROLIDE ACETATE
     Dosage: FORM STRENGTH: 30 MG
     Route: 030

REACTIONS (1)
  - Pneumonia [Recovered/Resolved]

NARRATIVE: CASE EVENT DATE: 20250417
